FAERS Safety Report 17502317 (Version 1)
Quarter: 2020Q1

REPORT INFORMATION
  Report Type: Spontaneous
  Country: US (occurrence: US)
  Receive Date: 20200305
  Receipt Date: 20200305
  Transmission Date: 20200409
  Serious: Yes (Hospitalization)
  Sender: FDA-Public Use
  Company Number: None

PATIENT
  Age: 23 Year
  Sex: Female

DRUGS (10)
  1. VOTRIENT [Suspect]
     Active Substance: PAZOPANIB HYDROCHLORIDE
     Indication: NEOPLASM MALIGNANT
     Route: 048
     Dates: start: 20191105
  2. CYPROHEPTAD [Concomitant]
  3. HYD POL/CPM [Concomitant]
  4. DEXAMETHASONE. [Concomitant]
     Active Substance: DEXAMETHASONE
  5. LEVETIRACETA [Concomitant]
  6. LORAZEPAM. [Concomitant]
     Active Substance: LORAZEPAM
  7. OLANZAPINE. [Concomitant]
     Active Substance: OLANZAPINE
  8. PANTOPRAZOLE [Concomitant]
     Active Substance: PANTOPRAZOLE
  9. VYVANSE [Concomitant]
     Active Substance: LISDEXAMFETAMINE DIMESYLATE
  10. MEGESTROL [Concomitant]
     Active Substance: MEGESTROL

REACTIONS (3)
  - Haemoglobin decreased [None]
  - Heart rate increased [None]
  - Noninfective encephalitis [None]

NARRATIVE: CASE EVENT DATE: 20200212
